FAERS Safety Report 7719134-9 (Version None)
Quarter: 2011Q3

REPORT INFORMATION
  Report Type: 
  Country: None (occurrence: None)
  Receive Date: 20110830
  Receipt Date: 20110824
  Transmission Date: 20111222
  Serious: Yes (Other)
  Sender: FDA-Public Use
  Company Number: IE-AMGEN-IRLSP2011043404

PATIENT
  Age: 73 Year
  Sex: Male

DRUGS (9)
  1. ARANESP [Suspect]
     Indication: RENAL FAILURE CHRONIC
     Dosage: 30 MUG, QWK
     Route: 058
     Dates: start: 20110406
  2. ZOLEPANT [Concomitant]
  3. CARDICOR [Concomitant]
  4. BUMETANIDE [Concomitant]
  5. PRAVASTATIN SODIUM [Concomitant]
  6. CLONFOLIC [Concomitant]
  7. QUININE SULFATE [Concomitant]
  8. GALFER [Concomitant]
  9. DIOVAN [Concomitant]

REACTIONS (3)
  - FATIGUE [None]
  - HAEMOGLOBIN DECREASED [None]
  - EPISTAXIS [None]
